FAERS Safety Report 6409677-2 (Version None)
Quarter: 2009Q4

REPORT INFORMATION
  Report Type: 
  Country: None (occurrence: None)
  Receive Date: 20091021
  Receipt Date: 20091021
  Transmission Date: 20100525
  Serious: Yes (Hospitalization)
  Sender: FDA-Public Use
  Company Number: None

PATIENT
  Sex: Female
  Weight: 58.0604 kg

DRUGS (2)
  1. SARAFEM [Suspect]
     Indication: PREMENSTRUAL SYNDROME
     Dosage: 20MG QD PO
     Route: 048
  2. MAXALT [Suspect]
     Indication: MIGRAINE WITHOUT AURA
     Dosage: 10MG QD- TID PRN PO
     Route: 048

REACTIONS (4)
  - ASTHENIA [None]
  - DEPRESSION [None]
  - SEROTONIN SYNDROME [None]
  - TREATMENT NONCOMPLIANCE [None]
